FAERS Safety Report 18404591 (Version 2)
Quarter: 2020Q4

REPORT INFORMATION
  Report Type: Spontaneous
  Country: EG (occurrence: EG)
  Receive Date: 20201020
  Receipt Date: 20201104
  Transmission Date: 20210114
  Serious: Yes (Death, Other)
  Sender: FDA-Public Use
  Company Number: EG-SA-2020SA265945

PATIENT

DRUGS (1)
  1. CEREZYME [Suspect]
     Active Substance: IMIGLUCERASE
     Indication: GAUCHER^S DISEASE TYPE III
     Dosage: 60 IU/KG, QOW
     Route: 042
     Dates: start: 20071009, end: 20080415

REACTIONS (2)
  - Death [Fatal]
  - Wrong technique in product usage process [Unknown]
